FAERS Safety Report 6272252-7 (Version None)
Quarter: 2009Q3

REPORT INFORMATION
  Report Type: 
  Country: None (occurrence: None)
  Receive Date: 20090717
  Receipt Date: 20090710
  Transmission Date: 20100115
  Serious: Yes (Other)
  Sender: FDA-Public Use
  Company Number: NL-JNJFOC-20090608485

PATIENT
  Sex: Female
  Weight: 64 kg

DRUGS (8)
  1. GALANTAMINE HYDROBROMIDE [Suspect]
     Indication: DEMENTIA
     Route: 048
  2. NIFEDIPINE [Suspect]
     Route: 065
  3. NIFEDIPINE [Suspect]
     Indication: HYPOTENSION
     Route: 065
  4. METOPROLOL TARTRATE [Concomitant]
     Route: 048
  5. ASCAL [Concomitant]
     Route: 048
  6. PROMOCARD [Concomitant]
     Route: 048
  7. OMEPRAZOLE [Concomitant]
     Route: 048
  8. SIMVASTATIN [Concomitant]
     Route: 048

REACTIONS (2)
  - ANGINA PECTORIS [None]
  - CHEST DISCOMFORT [None]
